FAERS Safety Report 14607838 (Version 2)
Quarter: 2018Q1

REPORT INFORMATION
  Report Type: Report from Study
  Country: US (occurrence: US)
  Receive Date: 20180307
  Receipt Date: 20180322
  Transmission Date: 20180509
  Serious: Yes (Other)
  Sender: FDA-Public Use
  Company Number: US-ASTELLAS-2018US004757

PATIENT
  Sex: Male

DRUGS (9)
  1. ENZALUTAMIDE [Interacting]
     Active Substance: ENZALUTAMIDE
     Route: 048
     Dates: start: 20170709
  2. TRELSTAR [Concomitant]
     Active Substance: TRIPTORELIN PAMOATE
     Indication: PROSTATE CANCER
     Dosage: UNK UNK, SHOT EVERY THREE MONTHS
     Route: 065
  3. CALCIUM/VITAMIN D                  /01204201/ [Concomitant]
     Active Substance: CALCIUM CARBONATE\ERGOCALCIFEROL
     Indication: LYMPHOMA
     Dosage: CALCIUM 600 MG  AND VITAMIN D, TWICE DAILY
     Route: 065
  4. ENZALUTAMIDE [Suspect]
     Active Substance: ENZALUTAMIDE
     Indication: HORMONE-REFRACTORY PROSTATE CANCER
     Route: 048
     Dates: start: 20170426, end: 20170629
  5. ENZALUTAMIDE [Interacting]
     Active Substance: ENZALUTAMIDE
     Route: 048
     Dates: start: 20171228
  6. XGEVA [Concomitant]
     Active Substance: DENOSUMAB
     Indication: LYMPHOMA
     Dosage: UNK UNK, SHOT EVRY THREE MONTHS
     Route: 065
  7. FLOMAX [Concomitant]
     Active Substance: TAMSULOSIN HYDROCHLORIDE
     Indication: PROSTATE CANCER
     Dosage: 0.4 CAPS, ONCE DAILY
     Route: 065
  8. TRAMADOL. [Suspect]
     Active Substance: TRAMADOL
     Indication: PRODUCT USED FOR UNKNOWN INDICATION
     Dosage: UNK, UNKNOWN FREQ.
     Route: 065
  9. PROVENGE [Concomitant]
     Active Substance: SIPULEUCEL-T
     Indication: IMMUNOCHEMOTHERAPY
     Dosage: UNK UNK, UNKNOWN FREQ.
     Route: 065

REACTIONS (3)
  - Drug interaction [Unknown]
  - Dizziness [Recovered/Resolved]
  - Localised infection [Recovered/Resolved]
